FAERS Safety Report 11716650 (Version 2)
Quarter: 2015Q4

REPORT INFORMATION
  Report Type: Spontaneous
  Country: US (occurrence: US)
  Receive Date: 20151104
  Receipt Date: 20151110
  Transmission Date: 20160304
  Serious: No
  Sender: FDA-Public Use
  Company Number: US-ELI_LILLY_AND_COMPANY-US201104007726

PATIENT
  Age: 56 Year
  Sex: Female

DRUGS (4)
  1. VITAMIN D3 [Concomitant]
     Active Substance: CHOLECALCIFEROL
     Dosage: 1000 IU, QD
  2. FORTEO [Suspect]
     Active Substance: TERIPARATIDE
     Indication: OSTEOPOROSIS
     Dosage: 20 UG, QD
     Dates: start: 201104, end: 20120716
  3. VITAMIN D [Concomitant]
     Active Substance: CHOLECALCIFEROL
     Dosage: 1000 MG, UNK
  4. CALCIUM [Concomitant]
     Active Substance: CALCIUM
     Dosage: 1200 MG, QD

REACTIONS (12)
  - Gait disturbance [Unknown]
  - Musculoskeletal pain [Unknown]
  - Stress fracture [Unknown]
  - Asthenia [Not Recovered/Not Resolved]
  - Muscle swelling [Unknown]
  - Fatigue [Recovered/Resolved]
  - Mood altered [Unknown]
  - Fall [Unknown]
  - Nausea [Unknown]
  - Intentional product misuse [Unknown]
  - Injection site bruising [Unknown]
  - Weight decreased [Unknown]

NARRATIVE: CASE EVENT DATE: 20110422
